FAERS Safety Report 9298491 (Version 1)
Quarter: 2013Q2

REPORT INFORMATION
  Report Type: Spontaneous
  Country: US (occurrence: US)
  Receive Date: 20130520
  Receipt Date: 20130520
  Transmission Date: 20140414
  Serious: No
  Sender: FDA-Public Use
  Company Number: US-ASTRAZENECA-2013SE31788

PATIENT
  Age: 77 Year
  Sex: Male
  Weight: 74.4 kg

DRUGS (6)
  1. PULMICORT FLEXHALER [Suspect]
     Indication: ASBESTOSIS
     Dosage: 360 MCG, 2 PUFFS TWICE DAILY
     Route: 055
  2. PULMICORT FLEXHALER [Suspect]
     Indication: PLEURAL FIBROSIS
     Dosage: 360 MCG, 2 PUFFS TWICE DAILY
     Route: 055
  3. PULMICORT FLEXHALER [Suspect]
     Indication: ASBESTOSIS
     Dosage: 180 MCG, 2 PUFFS DAILY
     Route: 055
  4. PULMICORT FLEXHALER [Suspect]
     Indication: PLEURAL FIBROSIS
     Dosage: 180 MCG, 2 PUFFS DAILY
     Route: 055
  5. 30 VITAMINS [Concomitant]
  6. AZELASTINE [Concomitant]

REACTIONS (4)
  - Dysgeusia [Unknown]
  - Fatigue [Unknown]
  - Throat irritation [Unknown]
  - Off label use [Unknown]
